FAERS Safety Report 23626476 (Version 2)
Quarter: 2024Q2

REPORT INFORMATION
  Report Type: Spontaneous
  Country: US (occurrence: US)
  Receive Date: 20240313
  Receipt Date: 20240424
  Transmission Date: 20240716
  Serious: No
  Sender: FDA-Public Use
  Company Number: US-APOTEX-2024AP003306

PATIENT
  Sex: Male

DRUGS (1)
  1. OLOPATADINE HYDROCHLORIDE [Suspect]
     Active Substance: OLOPATADINE HYDROCHLORIDE
     Indication: Conjunctivitis
     Dosage: 2 GTT DROPS, BID
     Route: 047

REACTIONS (2)
  - Product dose omission issue [Unknown]
  - Product closure removal difficult [Unknown]

NARRATIVE: CASE EVENT DATE: 20240301
